FAERS Safety Report 7588206-4 (Version None)
Quarter: 2011Q3

REPORT INFORMATION
  Report Type: 
  Country: None (occurrence: None)
  Receive Date: 20110705
  Receipt Date: 20110620
  Transmission Date: 20111222
  Serious: Yes (Hospitalization, Other)
  Sender: FDA-Public Use
  Company Number: US-BAYER-201038530NA

PATIENT
  Age: 24 Year
  Sex: Female
  Weight: 52.154 kg

DRUGS (3)
  1. YAZ [Suspect]
     Dosage: UNK
     Dates: start: 20070101, end: 20090101
  2. LOESTRIN 1.5/30 [Concomitant]
     Indication: CONTRACEPTION
     Dosage: UNK
     Dates: start: 20090901
  3. YAZ [Suspect]
     Indication: PRODUCT USED FOR UNKNOWN INDICATION
     Dosage: UNK
     Route: 048
     Dates: start: 20070401, end: 20090101

REACTIONS (4)
  - CHOLELITHIASIS [None]
  - ABDOMINAL PAIN UPPER [None]
  - CHOLECYSTITIS CHRONIC [None]
  - PAIN [None]
